FAERS Safety Report 20528158 (Version 1)
Quarter: 2022Q1

REPORT INFORMATION
  Report Type: Spontaneous
  Country: US (occurrence: US)
  Receive Date: 20220228
  Receipt Date: 20220228
  Transmission Date: 20220423
  Serious: Yes (Other)
  Sender: FDA-Public Use
  Company Number: US-TEVA-2022-US-2010732

PATIENT
  Age: 78 Year
  Sex: Female

DRUGS (2)
  1. LORAZEPAM [Suspect]
     Active Substance: LORAZEPAM
     Indication: Atrial fibrillation
     Dosage: 2 MILLIGRAM DAILY; ONCE EVERY 12 HOURS
     Route: 065
     Dates: start: 2005
  2. LORAZEPAM [Suspect]
     Active Substance: LORAZEPAM
     Indication: Heart rate irregular

REACTIONS (6)
  - Atrial fibrillation [Unknown]
  - Chest discomfort [Unknown]
  - Extrasystoles [Unknown]
  - Drug ineffective [Unknown]
  - Off label use [Unknown]
  - Product formulation issue [Unknown]

NARRATIVE: CASE EVENT DATE: 20220214
